FAERS Safety Report 17136948 (Version 2)
Quarter: 2019Q4

REPORT INFORMATION
  Report Type: Spontaneous
  Country: JP (occurrence: JP)
  Receive Date: 20191210
  Receipt Date: 20191224
  Transmission Date: 20200122
  Serious: Yes (Other)
  Sender: FDA-Public Use
  Company Number: JP-INCYTE CORPORATION-2019IN012516

PATIENT

DRUGS (14)
  1. JAKAVI [Suspect]
     Active Substance: RUXOLITINIB
     Dosage: 20 MG
     Route: 065
  2. HIDROXYUREA [Concomitant]
     Dosage: 1000 UNK
     Route: 065
  3. JAKAVI [Suspect]
     Active Substance: RUXOLITINIB
     Dosage: 20 MG
     Route: 065
  4. JAKAVI [Suspect]
     Active Substance: RUXOLITINIB
     Dosage: 5 MG
     Route: 065
  5. HIDROXYUREA [Concomitant]
     Indication: PRODUCT USED FOR UNKNOWN INDICATION
     Dosage: 500 UNK
     Route: 065
  6. HIDROXYUREA [Concomitant]
     Dosage: 2000 UNK
     Route: 065
  7. ANTITHYMOCYTE IMMUNOGLOBULIN (RABBIT) [Concomitant]
     Active Substance: LAPINE T-LYMPHOCYTE IMMUNE GLOBULIN
     Indication: PRODUCT USED FOR UNKNOWN INDICATION
     Dosage: UNK
     Route: 065
  8. JAKAVI [Suspect]
     Active Substance: RUXOLITINIB
     Dosage: 30 MG
     Route: 065
  9. HIDROXYUREA [Concomitant]
     Dosage: 2000 UNK
     Route: 065
  10. JAKAVI [Suspect]
     Active Substance: RUXOLITINIB
     Dosage: 15 MG
     Route: 065
  11. JAKAVI [Suspect]
     Active Substance: RUXOLITINIB
     Dosage: 10 MG
     Route: 065
  12. JAKAVI [Suspect]
     Active Substance: RUXOLITINIB
     Indication: PRIMARY MYELOFIBROSIS
     Dosage: 5 MG
     Route: 065
  13. JAKAVI [Suspect]
     Active Substance: RUXOLITINIB
     Dosage: 10 MG
     Route: 065
  14. HIDROXYUREA [Concomitant]
     Dosage: 1000 UNK
     Route: 065

REACTIONS (3)
  - Platelet count decreased [Unknown]
  - White blood cell count decreased [Unknown]
  - Colitis ischaemic [Unknown]
